FAERS Safety Report 8778623 (Version 1)
Quarter: 2012Q4

REPORT INFORMATION
  Report Type: 
  Country: US (occurrence: US)
  Receive Date: 20120912
  Receipt Date: 20120912
  Transmission Date: 20130627
  Serious: Yes (Other)
  Sender: FDA-Public Use
  Company Number: US-BAYER-2012-094398

PATIENT
  Age: 34 Year
  Sex: Male

DRUGS (1)
  1. BETASERON [Suspect]
     Indication: MULTIPLE SCLEROSIS
     Dosage: 0.25 mg, QOD
     Route: 058
     Dates: start: 20120202

REACTIONS (6)
  - Vision blurred [None]
  - Arthralgia [None]
  - Dizziness [None]
  - Hypoaesthesia [None]
  - Faecal incontinence [None]
  - Depression suicidal [None]
